FAERS Safety Report 9302982 (Version 2)
Quarter: 2013Q3

REPORT INFORMATION
  Report Type: Spontaneous
  Country: IT (occurrence: IT)
  Receive Date: 20130522
  Receipt Date: 20130708
  Transmission Date: 20140515
  Serious: Yes (Hospitalization)
  Sender: FDA-Public Use
  Company Number: IT-PFIZER INC-2013156112

PATIENT
  Age: 40 Year
  Sex: Male
  Weight: 64 kg

DRUGS (3)
  1. SUTENT [Suspect]
     Indication: GASTROINTESTINAL STROMAL TUMOUR
     Dosage: 37.5 MG, 1X/DAY
     Route: 048
     Dates: start: 20111001, end: 20120201
  2. MINIAS [Concomitant]
     Dosage: 40 DROPS, SINCE 6 MONTHS
     Route: 048
  3. OXYCONTIN [Concomitant]
     Indication: ANALGESIC THERAPY
     Dosage: 40 MG, SINCE 6 MONTHS
     Route: 048

REACTIONS (1)
  - Pancytopenia [Not Recovered/Not Resolved]
